FAERS Safety Report 4412074-2 (Version None)
Quarter: 2004Q3

REPORT INFORMATION
  Report Type: 
  Country: None (occurrence: None)
  Receive Date: 20040730
  Receipt Date: 20040726
  Transmission Date: 20050211
  Serious: Yes (Death, Hospitalization)
  Sender: FDA-Public Use
  Company Number: FR-BRISTOL-MYERS SQUIBB COMPANY-12652871

PATIENT
  Age: 60 Year
  Sex: Female

DRUGS (8)
  1. GLUCOPHAGE [Suspect]
     Route: 048
     Dates: end: 20040630
  2. APROVEL [Suspect]
     Dates: end: 20040630
  3. FURADANTIN [Suspect]
     Route: 048
     Dates: end: 20040630
  4. RIFADIN [Suspect]
     Dates: end: 20040630
  5. OFLOCET [Suspect]
     Dates: end: 20040630
  6. HYPERIUM [Suspect]
     Dates: end: 20040630
  7. NEURONTIN [Suspect]
     Dates: end: 20040630
  8. FERRITIN [Suspect]
     Dates: end: 20040630

REACTIONS (5)
  - CARDIAC ARREST [None]
  - EPILEPSY [None]
  - KETOSIS [None]
  - LACTIC ACIDOSIS [None]
  - SEPTIC SHOCK [None]
